FAERS Safety Report 16089811 (Version 1)
Quarter: 2019Q1

REPORT INFORMATION
  Report Type: Spontaneous
  Country: US (occurrence: US)
  Receive Date: 20190213
  Receipt Date: 20190213
  Transmission Date: 20190418
  Serious: No
  Sender: FDA-Public Use
  Company Number: None

PATIENT
  Age: 40 Year
  Sex: Female
  Weight: 110.22 kg

DRUGS (1)
  1. MIRENA [Suspect]
     Active Substance: LEVONORGESTREL
     Dates: start: 20180901, end: 20190207

REACTIONS (5)
  - Complication associated with device [None]
  - Abdominal distension [None]
  - Muscle spasms [None]
  - Alopecia [None]
  - Mood swings [None]

NARRATIVE: CASE EVENT DATE: 20190101
